FAERS Safety Report 14800004 (Version 2)
Quarter: 2018Q2

REPORT INFORMATION
  Report Type: Spontaneous
  Country: JP (occurrence: JP)
  Receive Date: 20180424
  Receipt Date: 20180514
  Transmission Date: 20180711
  Serious: Yes (Hospitalization, Other)
  Sender: FDA-Public Use
  Company Number: JP-GLAXOSMITHKLINE-JP2018JPN067088

PATIENT
  Age: 73 Year
  Sex: Male
  Weight: 50 kg

DRUGS (5)
  1. VALTREX [Suspect]
     Active Substance: VALACYCLOVIR HYDROCHLORIDE
     Indication: HERPES ZOSTER
     Dosage: 1000 MG, TID
     Route: 048
     Dates: start: 20180412, end: 20180416
  2. NAIXAN TABLETS [Concomitant]
     Indication: HERPES ZOSTER
     Dosage: 200 MG, TID
     Route: 048
     Dates: start: 20180412, end: 20180416
  3. METHYCOBAL [Concomitant]
     Active Substance: METHYLCOBALAMIN
     Indication: HERPES ZOSTER
     Dosage: UNK, TID
     Route: 048
     Dates: start: 20180412, end: 20180416
  4. REBAMIPIDE [Concomitant]
     Active Substance: REBAMIPIDE
     Indication: HERPES ZOSTER
     Dosage: 100 MG, TID
     Route: 048
     Dates: start: 20180416, end: 20180416
  5. CALONAL TABLET [Concomitant]
     Indication: HERPES ZOSTER
     Dosage: 600 MG, TID
     Route: 048
     Dates: start: 20180416, end: 20180416

REACTIONS (6)
  - Incontinence [Recovered/Resolved]
  - Pain [Recovering/Resolving]
  - Toxic encephalopathy [Recovered/Resolved]
  - Altered state of consciousness [Recovered/Resolved]
  - Restlessness [Recovered/Resolved]
  - Insomnia [Recovered/Resolved]

NARRATIVE: CASE EVENT DATE: 20180412
